FAERS Safety Report 13624686 (Version 4)
Quarter: 2017Q4

REPORT INFORMATION
  Report Type: Spontaneous
  Country: US (occurrence: US)
  Receive Date: 20170608
  Receipt Date: 20171116
  Transmission Date: 20180320
  Serious: No
  Sender: FDA-Public Use
  Company Number: US-PFIZER INC-2017248681

PATIENT
  Age: 48 Year
  Sex: Female

DRUGS (1)
  1. XELJANZ XR [Suspect]
     Active Substance: TOFACITINIB CITRATE
     Dosage: 11 MG

REACTIONS (5)
  - Headache [Unknown]
  - Hypertension [Unknown]
  - Constipation [Unknown]
  - Nasal congestion [Unknown]
  - Medication residue present [Unknown]

NARRATIVE: CASE EVENT DATE: 20170605
